FAERS Safety Report 7930592-7 (Version None)
Quarter: 2011Q4

REPORT INFORMATION
  Report Type: 
  Country: None (occurrence: None)
  Receive Date: 20111121
  Receipt Date: 20111115
  Transmission Date: 20120403
  Serious: Yes (Death, Other)
  Sender: FDA-Public Use
  Company Number: US-CELGENEUS-163-21880-11112385

PATIENT
  Sex: Male

DRUGS (12)
  1. COREG [Concomitant]
     Route: 065
  2. ACYCLOVIR [Concomitant]
     Route: 065
  3. POTASSIUM CHLORIDE [Concomitant]
     Route: 065
  4. PREDNISONE TAB [Concomitant]
     Route: 065
  5. MAG-OX [Concomitant]
     Route: 065
  6. REVLIMID [Suspect]
     Indication: MULTIPLE MYELOMA
     Dosage: 25 MILLIGRAM
     Route: 048
     Dates: start: 20111104
  7. COMPAZINE [Concomitant]
     Route: 065
  8. LISINOPRIL [Concomitant]
     Route: 065
  9. LASIX [Concomitant]
     Route: 065
  10. LORAZEPAM [Concomitant]
     Route: 065
  11. OXYCODONE HCL [Concomitant]
     Route: 065
  12. M.V.I. [Concomitant]
     Route: 065

REACTIONS (2)
  - DEATH [None]
  - MALAISE [None]
